FAERS Safety Report 9957103 (Version 1)
Quarter: 2014Q1

REPORT INFORMATION
  Report Type: Report from Study
  Country: US (occurrence: US)
  Receive Date: 20140304
  Receipt Date: 20140304
  Transmission Date: 20141002
  Serious: No
  Sender: FDA-Public Use
  Company Number: US-ABBVIE-13P-163-1099506-00

PATIENT
  Age: 64 Year
  Sex: Male

DRUGS (4)
  1. HUMIRA [Suspect]
     Indication: CROHN^S DISEASE
     Dates: start: 201301
  2. METFORMIN [Concomitant]
     Indication: DIABETES MELLITUS
  3. GLYBURIDE [Concomitant]
     Indication: DIABETES MELLITUS
  4. INSULIN [Concomitant]
     Indication: DIABETES MELLITUS
     Dosage: 10 CC EVERY OTHER DAY

REACTIONS (2)
  - Dermatitis contact [Recovering/Resolving]
  - Blood glucose increased [Not Recovered/Not Resolved]
